FAERS Safety Report 4376194-3 (Version None)
Quarter: 2004Q2

REPORT INFORMATION
  Report Type: 
  Country: None (occurrence: None)
  Receive Date: 20040610
  Receipt Date: 20040610
  Transmission Date: 20050107
  Serious: Yes (Hospitalization)
  Sender: FDA-Public Use
  Company Number: None

PATIENT
  Age: 57 Year
  Sex: Male
  Weight: 86.2 kg

DRUGS (9)
  1. INTEGRILIN [Suspect]
     Indication: ANTIPLATELET THERAPY
     Dosage: 2(7.9 ML BOLUSES) 14 ML/HR IV
     Route: 042
     Dates: start: 20040514, end: 20040520
  2. HEPARIN [Suspect]
     Dosage: 4,320 UNITS IV
     Route: 042
     Dates: start: 20040519
  3. MIDAZOLAM HCL [Concomitant]
  4. FENTANYL [Concomitant]
  5. NITROGLYCERIN [Concomitant]
  6. CLOPIDOGREL BISULFATE [Concomitant]
  7. PEPCID [Concomitant]
  8. MAGNESIUM SULFATE [Concomitant]
  9. ACETYLCYSTEINE [Concomitant]

REACTIONS (2)
  - POST PROCEDURAL COMPLICATION [None]
  - WOUND SECRETION [None]
